FAERS Safety Report 8141432-8 (Version None)
Quarter: 2012Q1

REPORT INFORMATION
  Report Type: 
  Country: None (occurrence: None)
  Receive Date: 20120103
  Receipt Date: 20111114
  Transmission Date: 20120608
  Serious: No
  Sender: FDA-Public Use
  Company Number: AE-2011-003449

PATIENT
  Age: 60 Year
  Sex: Male

DRUGS (4)
  1. PEGINTERFERON (PEGINTERFERON ALFA-2A) [Concomitant]
  2. INCIVEK [Suspect]
     Dosage: ORAL
     Route: 048
  3. RIBAVIRIN [Concomitant]
  4. ALBUTEROL [Concomitant]

REACTIONS (1)
  - OEDEMA PERIPHERAL [None]
